FAERS Safety Report 5846778-1 (Version None)
Quarter: 2008Q3

REPORT INFORMATION
  Report Type: 
  Country: None (occurrence: None)
  Receive Date: 20080815
  Receipt Date: 20080808
  Transmission Date: 20090109
  Serious: Yes (Other)
  Sender: FDA-Public Use
  Company Number: US-MERCK-0806USA01116

PATIENT
  Age: 55 Year
  Sex: Male

DRUGS (3)
  1. MAXALT-MLT [Suspect]
     Indication: MIGRAINE
     Route: 048
     Dates: start: 20080604, end: 20080604
  2. CELLCEPT [Concomitant]
     Route: 065
  3. PROGRAF [Concomitant]
     Route: 065

REACTIONS (2)
  - DIPLEGIA [None]
  - MUSCLE TIGHTNESS [None]
